FAERS Safety Report 8573203-2 (Version None)
Quarter: 2012Q2

REPORT INFORMATION
  Report Type: 
  Country: None (occurrence: None)
  Receive Date: 20120423
  Receipt Date: 20090513
  Transmission Date: 20120825
  Serious: Yes (Death)
  Sender: FDA-Public Use
  Company Number: PHEH2009US04841

PATIENT
  Age: 83 Year
  Sex: Male

DRUGS (11)
  1. EXJADE [Suspect]
     Indication: MYELODYSPLASTIC SYNDROME
     Dosage: 1250 MG DAILY, ORAL
     Route: 048
     Dates: start: 20070214, end: 20090504
  2. EXJADE [Suspect]
     Indication: IRON OVERLOAD
     Dosage: 1250 MG DAILY, ORAL
     Route: 048
     Dates: start: 20070214, end: 20090504
  3. PREDNISONE TAB [Concomitant]
  4. POTASSIUM [Concomitant]
  5. MAGNESIUM OXIDE [Concomitant]
  6. AMBIEN [Concomitant]
  7. ANIDULAFUNGIN [Concomitant]
  8. OXYCODONE HCL [Concomitant]
  9. ACYCLOVIR [Concomitant]
  10. BACTRIM DS [Concomitant]
  11. NEXIUM [Concomitant]

REACTIONS (1)
  - NEOPLASM MALIGNANT [None]
